FAERS Safety Report 6710545-7 (Version None)
Quarter: 2010Q2

REPORT INFORMATION
  Report Type: 
  Country: None (occurrence: None)
  Receive Date: 20100504
  Receipt Date: 20100427
  Transmission Date: 20101027
  Serious: Yes (Death)
  Sender: FDA-Public Use
  Company Number: US-GILEAD-2010-0028442

PATIENT
  Sex: Female
  Weight: 61.29 kg

DRUGS (8)
  1. LETAIRIS [Suspect]
     Indication: PULMONARY ARTERIAL HYPERTENSION
     Route: 048
     Dates: start: 20080105, end: 20091116
  2. REVATIO [Concomitant]
  3. VENTAVIS [Concomitant]
  4. METOPROLOL [Concomitant]
  5. HYDROCHLOROTHIAZIDE [Concomitant]
  6. COUMADIN [Concomitant]
  7. ADVAIR DISKUS 100/50 [Concomitant]
  8. SPIRIVA [Concomitant]

REACTIONS (1)
  - PULMONARY ARTERIAL HYPERTENSION [None]
